FAERS Safety Report 8881500 (Version 1)
Quarter: 2012Q4

REPORT INFORMATION
  Report Type: 
  Country: PR (occurrence: PR)
  Receive Date: 20121102
  Receipt Date: 20121102
  Transmission Date: 20130627
  Serious: Yes (Other)
  Sender: FDA-Public Use
  Company Number: PR-BAYER-2012-112128

PATIENT
  Sex: Female

DRUGS (1)
  1. MIRENA [Suspect]
     Dosage: 20 mcg/24hr, CONT
     Route: 015

REACTIONS (6)
  - Pain [None]
  - Vaginal haemorrhage [None]
  - Dyspareunia [None]
  - Vulvovaginal dryness [None]
  - Menstrual disorder [None]
  - Device expulsion [None]
